FAERS Safety Report 4691531-8 (Version None)
Quarter: 2005Q2

REPORT INFORMATION
  Report Type: 
  Country: None (occurrence: None)
  Receive Date: 20050608
  Receipt Date: 20050124
  Transmission Date: 20051028
  Serious: Yes (Other)
  Sender: FDA-Public Use
  Company Number: 393578

PATIENT
  Age: 17 Year
  Sex: Male
  Weight: 83 kg

DRUGS (4)
  1. ACCUTANE [Suspect]
     Indication: ACNE CYSTIC
     Dosage: 40 MG DAILY ORAL
     Route: 048
     Dates: start: 20041004, end: 20041201
  2. LEXAPRO [Concomitant]
  3. ADDERALL (AMFETAMINE/DEXTROAMPHETAMINE) [Concomitant]
  4. CELEXA [Concomitant]

REACTIONS (3)
  - CONDITION AGGRAVATED [None]
  - DEPRESSION [None]
  - IRRITABILITY [None]
